FAERS Safety Report 10244068 (Version 1)
Quarter: 2014Q2

REPORT INFORMATION
  Report Type: Spontaneous
  Country: US (occurrence: US)
  Receive Date: 20140618
  Receipt Date: 20140618
  Transmission Date: 20141212
  Serious: No
  Sender: FDA-Public Use
  Company Number: US-TARO-2013P1008545

PATIENT
  Age: 72 Year
  Sex: Male
  Weight: 78.47 kg

DRUGS (14)
  1. CLOBETASOL PROPIONATE CREAM USP 0.05% (EMOLLIENT) [Suspect]
     Route: 061
  2. CLOBETASOL PROPIONATE FOAM 5% [Suspect]
     Route: 061
  3. METFORMIN [Concomitant]
  4. LYSINE (CVS BRAND) [Concomitant]
  5. VITAMIN A [Concomitant]
  6. METOPROLOL [Concomitant]
  7. GABAPENTIN [Concomitant]
  8. SIMVASTATIN [Concomitant]
  9. TRAZODONE [Concomitant]
  10. KLONOPIN (CLONAZEPAM) [Concomitant]
  11. OXYBUTYNIN [Concomitant]
  12. LISINOPRIL [Concomitant]
  13. ASPIRIN [Concomitant]
  14. UNSPECIFIED VITAMINS [Concomitant]

REACTIONS (2)
  - Burning sensation [Recovered/Resolved]
  - Pain [Recovered/Resolved]
